FAERS Safety Report 8776949 (Version 2)
Quarter: 2012Q4

REPORT INFORMATION
  Report Type: 
  Country: US (occurrence: US)
  Receive Date: 20120911
  Receipt Date: 20121114
  Transmission Date: 20130627
  Serious: Yes (Death, Hospitalization)
  Sender: FDA-Public Use
  Company Number: US-GLAXOSMITHKLINE-A0991994A

PATIENT
  Age: 84 Year
  Sex: Male

DRUGS (3)
  1. ADVAIR [Suspect]
     Indication: CHRONIC OBSTRUCTIVE PULMONARY DISEASE
     Dosage: 1PUFF Twice per day
     Route: 055
  2. SINGULAIR [Concomitant]
  3. NEBULIZER [Concomitant]

REACTIONS (9)
  - Cardio-respiratory arrest [Fatal]
  - Coma [Unknown]
  - Respiratory failure [Fatal]
  - Acute respiratory distress syndrome [Fatal]
  - Coronary artery disease [Unknown]
  - Dyspnoea [Unknown]
  - Mechanical ventilation [Unknown]
  - Cardiac disorder [Unknown]
  - Chronic obstructive pulmonary disease [Fatal]
